FAERS Safety Report 5706084-2 (Version None)
Quarter: 2008Q2

REPORT INFORMATION
  Report Type: 
  Country: None (occurrence: None)
  Receive Date: 20080415
  Receipt Date: 20080403
  Transmission Date: 20081010
  Serious: Yes (Hospitalization)
  Sender: FDA-Public Use
  Company Number: BR-ROCHE-557287

PATIENT
  Age: 32 Year
  Sex: Male
  Weight: 84 kg

DRUGS (3)
  1. RIVOTRIL [Suspect]
     Route: 048
     Dates: start: 20040101
  2. PRESSOTEC [Concomitant]
     Dates: start: 20020101
  3. VERTIX [Concomitant]
     Indication: DIZZINESS

REACTIONS (7)
  - DIZZINESS [None]
  - FEELING ABNORMAL [None]
  - HYPERTENSION [None]
  - HYPOAESTHESIA [None]
  - NEPHRECTOMY [None]
  - SYNCOPE [None]
  - TUBERCULOSIS BLADDER [None]
